FAERS Safety Report 6672684-9 (Version None)
Quarter: 2010Q2

REPORT INFORMATION
  Report Type: 
  Country: None (occurrence: None)
  Receive Date: 20100408
  Receipt Date: 20100329
  Transmission Date: 20101027
  Serious: Yes (Life-Threatening, Hospitalization, Other)
  Sender: FDA-Public Use
  Company Number: JP-ROCHE-690287

PATIENT
  Sex: Male
  Weight: 75 kg

DRUGS (1)
  1. XELODA [Suspect]
     Indication: COLON CANCER
     Dosage: DRUG: XELODA 300
     Route: 048
     Dates: start: 20100222, end: 20100305

REACTIONS (11)
  - CHEILITIS [None]
  - DISSEMINATED INTRAVASCULAR COAGULATION [None]
  - GASTROENTERITIS STAPHYLOCOCCAL [None]
  - LOBAR PNEUMONIA [None]
  - NEUTROPENIA [None]
  - NEUTROPHIL COUNT DECREASED [None]
  - PALMAR-PLANTAR ERYTHRODYSAESTHESIA SYNDROME [None]
  - SEPSIS [None]
  - STOMATITIS [None]
  - SWOLLEN TONGUE [None]
  - THROMBOCYTOPENIA [None]
